FAERS Safety Report 5853419-6 (Version None)
Quarter: 2008Q3

REPORT INFORMATION
  Report Type: 
  Country: None (occurrence: None)
  Receive Date: 20080820
  Receipt Date: 20080808
  Transmission Date: 20090109
  Serious: Yes (Other)
  Sender: FDA-Public Use
  Company Number: 1000000364

PATIENT
  Age: 37 Year
  Sex: Female
  Weight: 52 kg

DRUGS (2)
  1. ESCITALOPRAM (ESCITALOPRAM OXALATE) (5  MILLIGRAM, TABLETS) (5 MG,ONCE [Suspect]
     Indication: GENERALISED ANXIETY DISORDER
     Dosage: (5 MG,ONCE), ORAL
     Route: 048
     Dates: start: 20080618, end: 20080618
  2. LYSANXIA (10 MILLIGRAM) [Concomitant]

REACTIONS (6)
  - BRADYCARDIA [None]
  - HEADACHE [None]
  - HYPOTENSION [None]
  - LOSS OF CONSCIOUSNESS [None]
  - MALAISE [None]
  - VERTIGO [None]
